FAERS Safety Report 17441067 (Version 1)
Quarter: 2020Q1

REPORT INFORMATION
  Report Type: Report from Study
  Country: FR (occurrence: FR)
  Receive Date: 20200220
  Receipt Date: 20200220
  Transmission Date: 20200409
  Serious: Yes (Other)
  Sender: FDA-Public Use
  Company Number: PHHY2019FR143641

PATIENT
  Age: 61 Year
  Sex: Female
  Weight: 46 kg

DRUGS (19)
  1. ADOPORT [Suspect]
     Active Substance: TACROLIMUS
     Dosage: 4 MG, UNK
     Route: 048
     Dates: start: 20190601, end: 20190604
  2. ADOPORT [Suspect]
     Active Substance: TACROLIMUS
     Dosage: 5.5 MG, UNK
     Route: 048
     Dates: start: 20190606, end: 20190607
  3. ADOPORT [Suspect]
     Active Substance: TACROLIMUS
     Dosage: 6 MG, UNK
     Route: 048
     Dates: start: 20190607, end: 20190608
  4. ADOPORT [Suspect]
     Active Substance: TACROLIMUS
     Dosage: 4 MG, UNKNOWN
     Route: 048
     Dates: start: 20190703, end: 20190723
  5. LERCANIDIPINE [Concomitant]
     Active Substance: LERCANIDIPINE
     Indication: PRODUCT USED FOR UNKNOWN INDICATION
     Dosage: UNK
     Route: 065
     Dates: start: 20190530
  6. ADOPORT [Suspect]
     Active Substance: TACROLIMUS
     Dosage: 5 MG, UNKNOWN
     Route: 048
     Dates: start: 20190723
  7. PANTOPRAZOLE [Concomitant]
     Active Substance: PANTOPRAZOLE
     Indication: PRODUCT USED FOR UNKNOWN INDICATION
     Dosage: UNK
     Route: 065
     Dates: start: 20190531
  8. BROMAZEPAM [Concomitant]
     Active Substance: BROMAZEPAM
     Indication: PRODUCT USED FOR UNKNOWN INDICATION
     Dosage: UNK
     Route: 065
     Dates: start: 20190531, end: 20190607
  9. ADOPORT [Suspect]
     Active Substance: TACROLIMUS
     Dosage: 4 MG, UNKNOWN
     Route: 048
     Dates: start: 20190622, end: 20190628
  10. ADOPORT [Suspect]
     Active Substance: TACROLIMUS
     Dosage: 7 MG, UNK
     Route: 048
     Dates: start: 20190608, end: 20190618
  11. PREDNISONE. [Concomitant]
     Active Substance: PREDNISONE
     Indication: PRODUCT USED FOR UNKNOWN INDICATION
     Dosage: UNK
     Route: 065
     Dates: start: 20190601
  12. ADOPORT [Suspect]
     Active Substance: TACROLIMUS
     Indication: RENAL TRANSPLANT
     Dosage: 8 MG, UNKNOWN
     Route: 048
     Dates: start: 20190530, end: 20190601
  13. ADOPORT [Suspect]
     Active Substance: TACROLIMUS
     Dosage: 5 MG, UNKNOWN
     Route: 048
     Dates: start: 20190628, end: 20190703
  14. BASILIXIMAB [Concomitant]
     Active Substance: BASILIXIMAB
     Indication: PRODUCT USED FOR UNKNOWN INDICATION
     Dosage: UNK
     Route: 065
     Dates: start: 20190530, end: 20190603
  15. PARACETAMOL [Concomitant]
     Active Substance: ACETAMINOPHEN
     Indication: PRODUCT USED FOR UNKNOWN INDICATION
     Dosage: UNK
     Route: 065
     Dates: start: 20190530
  16. ADOPORT [Suspect]
     Active Substance: TACROLIMUS
     Dosage: 4.5 MG, UNK
     Route: 048
     Dates: start: 20190604, end: 20190606
  17. ADOPORT [Suspect]
     Active Substance: TACROLIMUS
     Dosage: 6 MG, UNKNOWN
     Route: 048
     Dates: start: 20190618, end: 20190622
  18. BACTRIM [Concomitant]
     Active Substance: SULFAMETHOXAZOLE\TRIMETHOPRIM
     Indication: PRODUCT USED FOR UNKNOWN INDICATION
     Dosage: UNK
     Route: 065
     Dates: start: 20190601
  19. CELLCEPT [Concomitant]
     Active Substance: MYCOPHENOLATE MOFETIL\MYCOPHENOLATE MOFETIL HYDROCHLORIDE
     Indication: PRODUCT USED FOR UNKNOWN INDICATION
     Dosage: UNK
     Route: 065
     Dates: start: 20190530

REACTIONS (5)
  - Herpes zoster [Recovering/Resolving]
  - Haemorrhoids [Recovered/Resolved]
  - Varicella [Recovering/Resolving]
  - Haematochezia [Recovered/Resolved]
  - Anaemia [Recovered/Resolved]

NARRATIVE: CASE EVENT DATE: 20190601
